FAERS Safety Report 13906630 (Version 2)
Quarter: 2017Q3

REPORT INFORMATION
  Report Type: Spontaneous
  Country: US (occurrence: US)
  Receive Date: 20170825
  Receipt Date: 20170828
  Transmission Date: 20171127
  Serious: No
  Sender: FDA-Public Use
  Company Number: US-SUNOVION-2016SUN003481

PATIENT

DRUGS (7)
  1. INVEGA [Suspect]
     Active Substance: PALIPERIDONE
  2. PROZAC [Concomitant]
     Active Substance: FLUOXETINE HYDROCHLORIDE
  3. ZOLOFT [Concomitant]
     Active Substance: SERTRALINE HYDROCHLORIDE
  4. SEROQUEL [Suspect]
     Active Substance: QUETIAPINE FUMARATE
  5. METFORMIN [Concomitant]
     Active Substance: METFORMIN HYDROCHLORIDE
  6. LATUDA [Suspect]
     Active Substance: LURASIDONE HYDROCHLORIDE
     Dosage: 40 MG, QD
     Route: 048
  7. RISPERDAL [Suspect]
     Active Substance: RISPERIDONE

REACTIONS (7)
  - Sexual dysfunction [Unknown]
  - Libido decreased [Unknown]
  - Weight increased [Unknown]
  - Feeling abnormal [Unknown]
  - Depressed mood [Unknown]
  - Flat affect [Unknown]
  - Tachyphrenia [Unknown]
